FAERS Safety Report 7728952-2 (Version None)
Quarter: 2011Q3

REPORT INFORMATION
  Report Type: 
  Country: None (occurrence: None)
  Receive Date: 20110906
  Receipt Date: 20110822
  Transmission Date: 20111222
  Serious: Yes (Other)
  Sender: FDA-Public Use
  Company Number: GB-MYLANLABS-2011S1017453

PATIENT
  Sex: Female

DRUGS (2)
  1. GABAPENTIN [Suspect]
  2. GABAPENTIN [Suspect]
     Indication: PRODUCT USED FOR UNKNOWN INDICATION

REACTIONS (4)
  - EPIDERMAL GROWTH FACTOR RECEPTOR DECREASED [None]
  - RENAL IMPAIRMENT [None]
  - MYASTHENIA GRAVIS [None]
  - BLOOD PRESSURE INCREASED [None]
